FAERS Safety Report 21229993 (Version 2)
Quarter: 2022Q3

REPORT INFORMATION
  Report Type: Spontaneous
  Country: US (occurrence: US)
  Receive Date: 20220818
  Receipt Date: 20220902
  Transmission Date: 20221027
  Serious: Yes (Other)
  Sender: FDA-Public Use
  Company Number: US-TEVA-2022-US-2064481

PATIENT
  Age: 6 Decade
  Sex: Female

DRUGS (3)
  1. GABAPENTIN [Suspect]
     Active Substance: GABAPENTIN
     Indication: Coccydynia
     Dosage: 1200 MILLIGRAM DAILY;
     Route: 065
  2. MEXILETINE [Suspect]
     Active Substance: MEXILETINE
     Indication: Coccydynia
     Dosage: THREE TIMES DAILY
     Route: 065
  3. LIDOCAINE [Suspect]
     Active Substance: LIDOCAINE
     Indication: Coccydynia
     Route: 041
     Dates: start: 2011

REACTIONS (3)
  - Somnolence [Unknown]
  - Weight increased [Unknown]
  - Drug ineffective [Unknown]
